FAERS Safety Report 8992104 (Version 2)
Quarter: 2013Q3

REPORT INFORMATION
  Report Type: Report from Study
  Country: JP (occurrence: JP)
  Receive Date: 20121231
  Receipt Date: 20130805
  Transmission Date: 20140515
  Serious: Yes (Other)
  Sender: FDA-Public Use
  Company Number: JP-VERTEX PHARMACEUTICALS INC.-2012-026738

PATIENT
  Age: 62 Year
  Sex: Male

DRUGS (9)
  1. VX-950 (TELAPREVIR) [Suspect]
     Indication: CHRONIC HEPATITIS C
     Dosage: 2250 MG, QD
     Route: 048
     Dates: start: 20120313, end: 20120403
  2. VX-950 (TELAPREVIR) [Suspect]
     Dosage: 1500 MG, QD
     Route: 048
     Dates: start: 20120404, end: 20120605
  3. PEGINTRON [Suspect]
     Indication: CHRONIC HEPATITIS C
     Dosage: 1.5 ?G/KG, QW
     Route: 058
     Dates: start: 20120313, end: 20120402
  4. PEGINTRON [Suspect]
     Dosage: 1.2 ?G/KG, QW
     Route: 058
     Dates: start: 20120403, end: 20120626
  5. PEGINTRON [Suspect]
     Dosage: 0.75 ?G/KG, QW
     Dates: start: 20120703, end: 20120703
  6. REBETOL [Suspect]
     Indication: CHRONIC HEPATITIS C
     Dosage: 600 MG, QD
     Route: 048
     Dates: start: 20120313, end: 20120717
  7. RISPERDAL [Concomitant]
     Dosage: 1 MG, QD
     Route: 048
  8. SILECE [Concomitant]
     Dosage: 1 MG, QD
     Route: 048
  9. KENALOG [Concomitant]
     Dosage: UNK, PRN
     Route: 061
     Dates: end: 20120731

REACTIONS (2)
  - Stomatitis [Not Recovered/Not Resolved]
  - Depression [Recovered/Resolved]
